FAERS Safety Report 14288422 (Version 2)
Quarter: 2018Q1

REPORT INFORMATION
  Report Type: Report from Study
  Country: IT (occurrence: IT)
  Receive Date: 20171214
  Receipt Date: 20180117
  Transmission Date: 20180509
  Serious: Yes (Other)
  Sender: FDA-Public Use
  Company Number: IT-EXELIXIS-XL18417011628

PATIENT
  Age: 63 Year
  Sex: Male
  Weight: 62.5 kg

DRUGS (5)
  1. XL184 [Suspect]
     Active Substance: CABOZANTINIB
     Dosage: 60 MG, QD
     Route: 048
     Dates: end: 20171023
  2. XL184 [Suspect]
     Active Substance: CABOZANTINIB
     Indication: MEDULLARY THYROID CANCER
     Dosage: 175 MG, QD
     Route: 048
     Dates: start: 20091210, end: 20091227
  3. XL184 [Suspect]
     Active Substance: CABOZANTINIB
     Dosage: 75 MG, QD
     Route: 048
     Dates: start: 20100111
  4. XL184 [Suspect]
     Active Substance: CABOZANTINIB
     Dosage: 75 MG, QD
     Route: 048
     Dates: start: 20171121
  5. XL184 [Suspect]
     Active Substance: CABOZANTINIB
     Dosage: 125 MG, QD
     Route: 048
     Dates: start: 20091228, end: 20100110

REACTIONS (1)
  - Squamous cell carcinoma of skin [Recovering/Resolving]
